FAERS Safety Report 9545430 (Version 2)
Quarter: 2013Q4

REPORT INFORMATION
  Report Type: Spontaneous
  Country: US (occurrence: US)
  Receive Date: 20130923
  Receipt Date: 20131015
  Transmission Date: 20140711
  Serious: Yes (Hospitalization)
  Sender: FDA-Public Use
  Company Number: US-B.I. PHARMACEUTICALS,INC./RIDGEFIELD-2013-BI-29301BP

PATIENT
  Age: 63 Year
  Sex: Female
  Weight: 87.95 kg

DRUGS (2)
  1. SPIRIVA [Suspect]
     Indication: CHRONIC OBSTRUCTIVE PULMONARY DISEASE
     Dosage: 18 MCG
     Route: 055
     Dates: start: 201003
  2. ADVAIR [Concomitant]
     Route: 055

REACTIONS (7)
  - Heart rate irregular [Not Recovered/Not Resolved]
  - Renal failure [Recovered/Resolved]
  - Arterial occlusive disease [Not Recovered/Not Resolved]
  - Pulmonary embolism [Not Recovered/Not Resolved]
  - Dehydration [Recovered/Resolved]
  - Colitis [Recovered/Resolved]
  - Infection [Recovered/Resolved]
